FAERS Safety Report 12638843 (Version 2)
Quarter: 2017Q1

REPORT INFORMATION
  Report Type: Report from Study
  Country: None (occurrence: DE)
  Receive Date: 20160809
  Receipt Date: 20170206
  Transmission Date: 20170428
  Serious: Yes (Death, Hospitalization, Disabling, Other)
  Sender: FDA-Public Use
  Company Number: DE-ABBVIE-16K-062-1693470-00

PATIENT
  Age: 73 Year
  Sex: Female

DRUGS (1)
  1. HUMIRA [Suspect]
     Active Substance: ADALIMUMAB
     Indication: RHEUMATOID ARTHRITIS
     Route: 058
     Dates: start: 201211

REACTIONS (9)
  - Laboratory test abnormal [Unknown]
  - Cerebral artery embolism [Fatal]
  - Aspiration [Unknown]
  - Gastrointestinal haemorrhage [Unknown]
  - Dysphagia [Unknown]
  - Rheumatoid nodule [Unknown]
  - Sacroiliac fracture [Unknown]
  - Cauda equina syndrome [Unknown]
  - Cerebral ischaemia [Fatal]

NARRATIVE: CASE EVENT DATE: 201403
